FAERS Safety Report 8453837-6 (Version None)
Quarter: 2012Q2

REPORT INFORMATION
  Report Type: 
  Country: None (occurrence: None)
  Receive Date: 20120323
  Receipt Date: 20111102
  Transmission Date: 20120825
  Serious: Yes (Hospitalization)
  Sender: FDA-Public Use
  Company Number: 163-21880-11110443

PATIENT
  Age: 77 Year
  Sex: Female

DRUGS (2)
  1. REVLIMID [Suspect]
     Indication: MULTIPLE MYELOMA
     Dosage: 10 MG, PO; 5 MG, DAILY X 21 DAYS, PO
     Route: 048
     Dates: start: 20111007, end: 20111014
  2. REVLIMID [Suspect]
     Indication: MULTIPLE MYELOMA
     Dosage: 10 MG, PO; 5 MG, DAILY X 21 DAYS, PO
     Route: 048
     Dates: start: 20110801

REACTIONS (1)
  - FULL BLOOD COUNT DECREASED [None]
